FAERS Safety Report 9175665 (Version 2)
Quarter: 2013Q4

REPORT INFORMATION
  Report Type: Spontaneous
  Country: US (occurrence: US)
  Receive Date: 20120915
  Receipt Date: 20131031
  Transmission Date: 20140711
  Serious: No
  Sender: FDA-Public Use
  Company Number: US-009507513-2012SP036700

PATIENT
  Age: 63 Year
  Sex: Female

DRUGS (1)
  1. NASONEX [Suspect]
     Dosage: 50 MCG, IN EACH NOSTRIL
     Route: 045
     Dates: start: 20120625, end: 20120628

REACTIONS (4)
  - Abdominal discomfort [Not Recovered/Not Resolved]
  - Eructation [Not Recovered/Not Resolved]
  - Nausea [Not Recovered/Not Resolved]
  - Dysgeusia [Not Recovered/Not Resolved]
